FAERS Safety Report 11956829 (Version 1)
Quarter: 2016Q1

REPORT INFORMATION
  Report Type: Report from Study
  Country: ES (occurrence: ES)
  Receive Date: 20160126
  Receipt Date: 20160126
  Transmission Date: 20160526
  Serious: Yes (Hospitalization)
  Sender: FDA-Public Use
  Company Number: ES-PFIZER INC-2016037215

PATIENT
  Age: 67 Year
  Sex: Male

DRUGS (6)
  1. VANDRAL RETARD [Suspect]
     Active Substance: VENLAFAXINE HYDROCHLORIDE
     Dosage: 75 MG, 1X/DAY
     Route: 048
     Dates: start: 201411, end: 20150112
  2. ALOPURINOL [Concomitant]
     Active Substance: ALLOPURINOL
     Dosage: 1 DF, 1X/DAY
     Route: 048
     Dates: start: 2013, end: 20150112
  3. OMEPRAZOL [Concomitant]
     Active Substance: OMEPRAZOLE
     Dosage: 1 DF, 1X/DAY
     Route: 048
     Dates: start: 201404
  4. PAROXETINE [Interacting]
     Active Substance: PAROXETINE\PAROXETINE HYDROCHLORIDE
     Dosage: 1 DF, 1X/DAY
     Route: 048
     Dates: start: 2013, end: 20150112
  5. MADOPAR [Interacting]
     Active Substance: BENSERAZIDE HYDROCHLORIDE\LEVODOPA
     Indication: PARKINSON^S DISEASE
     Dosage: 1 DF, 1X/DAY
     Route: 048
     Dates: start: 201404, end: 20150112
  6. ACICLOVIR [Interacting]
     Active Substance: ACYCLOVIR
     Indication: HERPES ZOSTER
     Dosage: 1 DF, 1X/DAY
     Route: 048
     Dates: start: 20150110, end: 20150112

REACTIONS (2)
  - Confusional state [Recovered/Resolved]
  - Drug interaction [Recovered/Resolved]

NARRATIVE: CASE EVENT DATE: 20150110
